FAERS Safety Report 11965096 (Version 2)
Quarter: 2016Q1

REPORT INFORMATION
  Report Type: Report from Study
  Country: US (occurrence: US)
  Receive Date: 20160127
  Receipt Date: 20160127
  Transmission Date: 20160526
  Serious: Yes (Other)
  Sender: FDA-Public Use
  Company Number: US-AMGEN-USASL2015133910

PATIENT
  Age: 41 Year
  Sex: Female

DRUGS (1)
  1. REPATHA [Suspect]
     Active Substance: EVOLOCUMAB
     Indication: DYSLIPIDAEMIA
     Dosage: 140 MG, TWICE A MONTH
     Route: 065
     Dates: start: 20151026

REACTIONS (12)
  - Dry mouth [Not Recovered/Not Resolved]
  - Bronchitis [Recovering/Resolving]
  - Epistaxis [Unknown]
  - Diarrhoea [Recovered/Resolved]
  - Injection site bruising [Recovered/Resolved]
  - Therapeutic response unexpected [Unknown]
  - Off label use [Unknown]
  - Aphonia [Unknown]
  - Arthralgia [Not Recovered/Not Resolved]
  - Nasal discomfort [Unknown]
  - Oropharyngeal pain [Not Recovered/Not Resolved]
  - Rhinorrhoea [Unknown]

NARRATIVE: CASE EVENT DATE: 2015
